FAERS Safety Report 18992574 (Version 2)
Quarter: 2021Q1

REPORT INFORMATION
  Report Type: Spontaneous
  Country: GB (occurrence: GB)
  Receive Date: 20210310
  Receipt Date: 20210317
  Transmission Date: 20210420
  Serious: Yes (Other)
  Sender: FDA-Public Use
  Company Number: GB-ORGANON-O2103GBR001093

PATIENT
  Age: 18 Year
  Sex: Female
  Weight: 57 kg

DRUGS (9)
  1. PREDNISOLONE. [Concomitant]
     Active Substance: PREDNISOLONE
     Dosage: EIGHT TABLETS ONCE DAILY
     Dates: start: 20210118, end: 20210123
  2. RIGEVIDON [ETHINYLESTRADIOL;LEVONORGESTREL] [Concomitant]
     Active Substance: ETHINYL ESTRADIOL\LEVONORGESTREL
     Dosage: TAKE ONE AS DIRECTED
     Dates: start: 20191204
  3. SALAMOL [SALBUTAMOL SULFATE] [Concomitant]
     Active Substance: ALBUTEROL SULFATE
     Dosage: INHALE 2 DOSES AS NEEDED
     Dates: start: 20200728
  4. MONTELUKAST SODIUM. [Suspect]
     Active Substance: MONTELUKAST SODIUM
     Dosage: NIGHT
     Dates: start: 20210224
  5. CLENIL MODULITE [Concomitant]
     Active Substance: BECLOMETHASONE DIPROPIONATE
     Dosage: INHALE 2 DOSES TWICE DAILY
     Dates: start: 20201231, end: 20210219
  6. DOXYCYCLINE. [Concomitant]
     Active Substance: DOXYCYCLINE
     Dosage: TWO NOW THEN ONE DAILY
     Dates: start: 20210115, end: 20210122
  7. BETAMETHASONE VALERATE. [Concomitant]
     Active Substance: BETAMETHASONE VALERATE
     Dosage: BD
     Dates: start: 20210212, end: 20210219
  8. COMBISAL [Concomitant]
     Dosage: INHALE 2 DOSES TWICE DAILY
     Dates: start: 20210201
  9. CIPROFLOXACIN. [Concomitant]
     Active Substance: CIPROFLOXACIN
     Dosage: TAKE ONE TWICE DAILY
     Dates: start: 20210118, end: 20210125

REACTIONS (3)
  - Angioedema [Recovering/Resolving]
  - Rash [Recovering/Resolving]
  - Oropharyngeal pain [Recovering/Resolving]

NARRATIVE: CASE EVENT DATE: 20210225
